FAERS Safety Report 6617888 (Version 9)
Quarter: 2013Q3

REPORT INFORMATION
  Report Type: Report from Study
  Country: US (occurrence: US)
  Receive Date: 20080418
  Receipt Date: 20130701
  Transmission Date: 20140515
  Serious: Yes (Other)
  Sender: FDA-Public Use
  Company Number: US-JNJFOC-20080402420

PATIENT
  Age: 14 Year
  Sex: Male
  Weight: 57.8 kg

DRUGS (19)
  1. INFLIXIMAB [Suspect]
     Indication: CROHN^S DISEASE
     Route: 042
     Dates: start: 20070201
  2. INFLIXIMAB [Suspect]
     Indication: CROHN^S DISEASE
     Route: 042
     Dates: start: 20070102
  3. INFLIXIMAB [Suspect]
     Indication: CROHN^S DISEASE
     Dosage: 12TH INFUSION SO FAR
     Route: 042
     Dates: start: 20061208
  4. INFLIXIMAB [Suspect]
     Indication: CROHN^S DISEASE
     Route: 042
     Dates: start: 20061012
  5. INFLIXIMAB [Suspect]
     Indication: CROHN^S DISEASE
     Route: 042
     Dates: start: 20060914
  6. INFLIXIMAB [Suspect]
     Indication: CROHN^S DISEASE
     Dosage: V10: AT 5MG/KG
     Route: 042
     Dates: start: 20060802
  7. INFLIXIMAB [Suspect]
     Indication: CROHN^S DISEASE
     Route: 042
     Dates: start: 20070601
  8. INFLIXIMAB [Suspect]
     Indication: CROHN^S DISEASE
     Route: 042
     Dates: start: 20071110
  9. INFLIXIMAB [Suspect]
     Indication: CROHN^S DISEASE
     Route: 042
     Dates: start: 20070921
  10. INFLIXIMAB [Suspect]
     Indication: CROHN^S DISEASE
     Route: 042
     Dates: start: 20070803
  11. INFLIXIMAB [Suspect]
     Indication: CROHN^S DISEASE
     Route: 042
     Dates: start: 20070330
  12. INFLIXIMAB [Suspect]
     Indication: CROHN^S DISEASE
     Route: 042
     Dates: start: 20070723
  13. INFLIXIMAB [Suspect]
     Indication: CROHN^S DISEASE
     Route: 042
     Dates: start: 20080102
  14. 5-ASA [Concomitant]
     Dosage: ROUTE: ORAL AND RECTAL
  15. ANTIBIOTICS [Concomitant]
  16. PROBIOTICS [Concomitant]
  17. CORTICOSTEROIDS [Concomitant]
  18. METHOTREXATE [Concomitant]
     Dates: start: 200703, end: 20071116
  19. 6-MERCAPTOPURINE [Concomitant]
     Dates: start: 20060621, end: 200703

REACTIONS (1)
  - Malignant melanoma [Recovered/Resolved with Sequelae]
